FAERS Safety Report 4948122-0 (Version None)
Quarter: 2006Q1

REPORT INFORMATION
  Report Type: 
  Country: None (occurrence: None)
  Receive Date: 20060320
  Receipt Date: 20050913
  Transmission Date: 20060701
  Serious: Yes (Hospitalization)
  Sender: FDA-Public Use
  Company Number: US-MERCK-0509USA01822

PATIENT
  Age: 51 Year
  Sex: Female

DRUGS (1)
  1. VIOXX [Suspect]
     Indication: PAIN IN EXTREMITY
     Route: 048
     Dates: start: 20010712

REACTIONS (4)
  - BLOOD CHOLESTEROL INCREASED [None]
  - CHOLECYSTITIS ACUTE [None]
  - MYOCARDIAL INFARCTION [None]
  - THERAPEUTIC RESPONSE DECREASED [None]
